FAERS Safety Report 7701880-4 (Version None)
Quarter: 2011Q3

REPORT INFORMATION
  Report Type: 
  Country: None (occurrence: None)
  Receive Date: 20110822
  Receipt Date: 20110815
  Transmission Date: 20111222
  Serious: No
  Sender: FDA-Public Use
  Company Number: US-PFIZER INC-2011188263

PATIENT

DRUGS (2)
  1. DEPAKOTE [Suspect]
     Dosage: 1000 MG, DAILY
  2. ZOLOFT [Suspect]
     Dosage: UNK

REACTIONS (1)
  - BLOOD SODIUM DECREASED [None]
